FAERS Safety Report 8280865-6 (Version None)
Quarter: 2012Q2

REPORT INFORMATION
  Report Type: 
  Country: None (occurrence: None)
  Receive Date: 20120412
  Receipt Date: 20120409
  Transmission Date: 20120825
  Serious: Yes (Hospitalization)
  Sender: FDA-Public Use
  Company Number: TR-ABBOTT-12P-161-0923298-00

PATIENT
  Sex: Female
  Weight: 42 kg

DRUGS (6)
  1. ZEMPLAR [Suspect]
     Indication: HYPERPARATHYROIDISM
     Dosage: 4 MCG X 3/WEEK
     Route: 042
     Dates: start: 20120103
  2. FORADIL [Concomitant]
     Indication: ANAEMIA
     Dosage: 12/400 MCG X 2
     Route: 055
     Dates: start: 20100101
  3. NOVOMIX [Concomitant]
     Indication: DIABETES MELLITUS
     Dosage: 10 IU (MORNING)/8 IU (EVENING)
     Route: 058
     Dates: start: 20090704
  4. LANSOR [Concomitant]
     Indication: GASTRITIS
     Route: 048
     Dates: start: 20110903
  5. EPREX [Concomitant]
     Indication: ANAEMIA
     Dosage: 3000 IU X 2/WEEK
     Route: 058
     Dates: start: 20110901
  6. PHOS-EX [Concomitant]
     Indication: HYPERPARATHYROIDISM
     Dosage: 1000 MG X 3
     Route: 048
     Dates: start: 20110801

REACTIONS (2)
  - BRONCHITIS [None]
  - CHRONIC OBSTRUCTIVE PULMONARY DISEASE [None]
